FAERS Safety Report 4746916-8 (Version None)
Quarter: 2005Q3

REPORT INFORMATION
  Report Type: 
  Country: None (occurrence: None)
  Receive Date: 20050815
  Receipt Date: 20050728
  Transmission Date: 20060218
  Serious: Yes (Hospitalization)
  Sender: FDA-Public Use
  Company Number: USA0507104089

PATIENT
  Age: 67 Year
  Sex: Female
  Weight: 119 kg

DRUGS (3)
  1. HUMULIN R [Suspect]
  2. HUMULIN 70/30 [Suspect]
     Dosage: 99 U DAY
  3. NICOTINE POLACRILEX [Concomitant]

REACTIONS (7)
  - CELLULITIS [None]
  - FACIAL PALSY [None]
  - FALL [None]
  - OSTEOARTHRITIS [None]
  - PERIODONTAL DISEASE [None]
  - TOOTH LOSS [None]
  - TRANSIENT ISCHAEMIC ATTACK [None]
